FAERS Safety Report 24636761 (Version 1)
Quarter: 2024Q4

REPORT INFORMATION
  Report Type: Spontaneous
  Country: US (occurrence: US)
  Receive Date: 20241119
  Receipt Date: 20241119
  Transmission Date: 20250114
  Serious: No
  Sender: ABBVIE
  Company Number: US-ABBVIE-6000214

PATIENT

DRUGS (2)
  1. HUMIRA [Suspect]
     Active Substance: ADALIMUMAB
     Indication: Rheumatoid arthritis
     Route: 058
  2. HUMIRA [Suspect]
     Active Substance: ADALIMUMAB
     Indication: Psoriatic arthropathy

REACTIONS (7)
  - Intervertebral disc degeneration [Unknown]
  - Cardiac failure congestive [Unknown]
  - Cerebral arteritis [Unknown]
  - Malaise [Unknown]
  - Spondylitis [Unknown]
  - Headache [Unknown]
  - Spinal disorder [Unknown]

NARRATIVE: CASE EVENT DATE: 20241108
